FAERS Safety Report 14685597 (Version 1)
Quarter: 2018Q1

REPORT INFORMATION
  Report Type: Spontaneous
  Country: US (occurrence: US)
  Receive Date: 20180327
  Receipt Date: 20180327
  Transmission Date: 20180509
  Serious: No
  Sender: FDA-Public Use
  Company Number: US-TEVA-2018-US-874825

PATIENT
  Age: 64 Year
  Sex: Male

DRUGS (14)
  1. RITUXIMAB. [Suspect]
     Active Substance: RITUXIMAB
     Dosage: 6 CYCLES WITH BENDAMUSTINE AND BORTEZOMIB AFTER 1ST RELAPSE IN FEBRUARY 2010; FOLLOWED BY MAINTEN...
     Route: 065
     Dates: start: 2010
  2. PREDNISONE. [Suspect]
     Active Substance: PREDNISONE
     Dosage: STARTED AFTER 2ND RELAPSE IN JANUARY 2015 WITH CYCLOPHOSPHAMIDE, ADRIAMYCIN, VINCRISTINE AND RITU...
     Route: 065
     Dates: start: 2015
  3. IDELALISIB [Suspect]
     Active Substance: IDELALISIB
     Dosage: STARTED AFTER DISEASE PROGRESSION
     Route: 065
     Dates: start: 201512
  4. VINCRISTINE [Concomitant]
     Active Substance: VINCRISTINE
     Dosage: STARTED AFTER 2ND RELAPSE IN JANUARY 2015 WITH CYCLOPHOSPHAMIDE, ADRIAMYCIN, RITUXIMAB AND PREDNI...
     Route: 065
     Dates: start: 2015
  5. BORTEZOMIB [Suspect]
     Active Substance: BORTEZOMIB
     Dosage: SIX CYCLES
     Route: 065
     Dates: start: 2010
  6. VALACYCLOVIR [Suspect]
     Active Substance: VALACYCLOVIR HYDROCHLORIDE
     Route: 065
  7. CYCLOPHOSPHAMIDE. [Suspect]
     Active Substance: CYCLOPHOSPHAMIDE
     Dosage: STARTED AFTER 2ND RELAPSE IN JANUARY 2015 WITH RITUXIMAB, ADRIAMYCIN, VINCRISTINE AND PREDNISONE;...
     Route: 065
     Dates: start: 2015
  8. OBINUTUZUMAB. [Suspect]
     Active Substance: OBINUTUZUMAB
     Dosage: 1000MG/M2 ONCE EVERY 28 DAYS
     Route: 042
  9. RITUXIMAB. [Suspect]
     Active Substance: RITUXIMAB
     Dosage: SIX CYCLES WITH FLUDARABINE; FOLLOWED BY MAINTENANCE THERAPY
     Route: 065
  10. RITUXIMAB. [Suspect]
     Active Substance: RITUXIMAB
     Dosage: STARTED AFTER 2ND RELAPSE IN JANUARY 2015 WITH CYCLOPHOSPHAMIDE, ADRIAMYCIN, VINCRISTINE AND PRED...
     Route: 065
     Dates: start: 2015
  11. FLUDARABINE [Suspect]
     Active Substance: FLUDARABINE PHOSPHATE
     Dosage: SIX CYCLES
     Route: 065
  12. CHLORAMBUCIL [Suspect]
     Active Substance: CHLORAMBUCIL
     Dosage: 24MG ONCE EVERY 15 DAYS
     Route: 048
  13. ADRIAMYCIN [Concomitant]
     Active Substance: DOXORUBICIN HYDROCHLORIDE
     Dosage: STARTED AFTER 2ND RELAPSE IN JANUARY 2015 WITH CYCLOPHOSPHAMIDE, RITUXIMAB, VINCRISTINE AND PREDN...
     Route: 065
     Dates: start: 2015
  14. BENDAMUSTINE [Suspect]
     Active Substance: BENDAMUSTINE
     Dosage: SIX CYCLES
     Route: 065
     Dates: start: 2010

REACTIONS (4)
  - Weight decreased [Unknown]
  - Fatigue [Unknown]
  - Herpes simplex [Recovered/Resolved]
  - Lymphadenitis viral [Recovered/Resolved]
